FAERS Safety Report 7941866-8 (Version None)
Quarter: 2011Q4

REPORT INFORMATION
  Report Type: 
  Country: None (occurrence: None)
  Receive Date: 20111128
  Receipt Date: 20111117
  Transmission Date: 20120403
  Serious: Yes (Life-Threatening, Hospitalization)
  Sender: FDA-Public Use
  Company Number: US-BAYER-200928615NA

PATIENT
  Age: 48 Year
  Sex: Female
  Weight: 74.83 kg

DRUGS (10)
  1. MOTRIN [Concomitant]
     Dosage: UNK
     Dates: start: 20080302
  2. IMITREX [Concomitant]
     Dosage: UNK
     Dates: start: 20000101, end: 20080101
  3. YAZ [Suspect]
     Indication: PREMENSTRUAL SYNDROME
     Dosage: UNK
     Dates: start: 20080222, end: 20080302
  4. PEPCID [Concomitant]
     Dosage: UNK
     Dates: start: 20080302
  5. NSAID'S [Concomitant]
     Dosage: UNK UNK, PRN
     Dates: start: 20000101
  6. PROZAC [Concomitant]
     Indication: ANXIETY
  7. TOPAMAX [Concomitant]
     Dosage: UNK
     Dates: start: 20070101, end: 20080101
  8. PROZAC [Concomitant]
     Indication: PREMENSTRUAL SYNDROME
     Dosage: 20 MG, DAILY
     Route: 048
     Dates: start: 20040101, end: 20100101
  9. YASMIN [Suspect]
  10. PAXIL [Concomitant]
     Dosage: 25 MG, QD

REACTIONS (11)
  - VOMITING [None]
  - PULMONARY EMBOLISM [None]
  - TRICUSPID VALVE INCOMPETENCE [None]
  - DYSPNOEA [None]
  - NAUSEA [None]
  - CHEST PAIN [None]
  - PULMONARY HYPERTENSION [None]
  - WEIGHT INCREASED [None]
  - RIGHT VENTRICULAR HYPERTROPHY [None]
  - ANXIETY [None]
  - MENTAL DISORDER [None]
